FAERS Safety Report 6343574-6 (Version None)
Quarter: 2009Q3

REPORT INFORMATION
  Report Type: 
  Country: None (occurrence: None)
  Receive Date: 20090904
  Receipt Date: 20090904
  Transmission Date: 20100115
  Serious: Yes (Other)
  Sender: FDA-Public Use
  Company Number: None

PATIENT
  Sex: Female
  Weight: 149.687 kg

DRUGS (2)
  1. INDOMETHACIN [Suspect]
     Indication: MUSCLE STRAIN
     Dosage: 1 BYE MOUTH 3 TIMES A DAY AS NEEDED
     Route: 048
  2. INDOMETHACIN [Suspect]
     Indication: MYOSITIS
     Dosage: 1 BYE MOUTH 3 TIMES A DAY AS NEEDED
     Route: 048

REACTIONS (2)
  - ABDOMINAL PAIN UPPER [None]
  - CHEST PAIN [None]
